FAERS Safety Report 9547458 (Version 1)
Quarter: 2013Q3

REPORT INFORMATION
  Report Type: Spontaneous
  Country: US (occurrence: US)
  Receive Date: 20130924
  Receipt Date: 20130924
  Transmission Date: 20140515
  Serious: Yes (Hospitalization)
  Sender: FDA-Public Use
  Company Number: US-BAYER-2013-114975

PATIENT
  Sex: Female

DRUGS (2)
  1. BETASERON [Suspect]
     Dosage: 0.3 MG, UNK
     Dates: end: 201301
  2. NEURONTIN [Concomitant]
     Dosage: 300 MG, UNK

REACTIONS (2)
  - Injection site infection [None]
  - Drug administered at inappropriate site [None]
